FAERS Safety Report 7682774-X (Version None)
Quarter: 2011Q3

REPORT INFORMATION
  Report Type: 
  Country: None (occurrence: None)
  Receive Date: 20110815
  Receipt Date: 20110804
  Transmission Date: 20111222
  Serious: Yes (Hospitalization)
  Sender: FDA-Public Use
  Company Number: US-ASTRAZENECA-2011SE47431

PATIENT
  Age: 22797 Day
  Sex: Female
  Weight: 59.9 kg

DRUGS (7)
  1. ATACAND [Suspect]
     Indication: HYPERTENSION
     Route: 048
     Dates: start: 20110723
  2. METOPROLOL SUCCINATE EXTENDED RELEASE [Concomitant]
  3. CELEXA [Concomitant]
  4. RISPERIDONE [Concomitant]
  5. ASPIRIN [Concomitant]
  6. CADUET [Suspect]
     Indication: HYPERLIPIDAEMIA
     Route: 048
     Dates: start: 20090723
  7. METOCLOPRAMIDE [Concomitant]

REACTIONS (2)
  - BLOOD PRESSURE [None]
  - HEADACHE [None]
